FAERS Safety Report 17407970 (Version 1)
Quarter: 2020Q1

REPORT INFORMATION
  Report Type: Spontaneous
  Country: US (occurrence: US)
  Receive Date: 20200212
  Receipt Date: 20200212
  Transmission Date: 20200409
  Serious: No
  Sender: FDA-Public Use
  Company Number: US-PFIZER INC-2020062456

PATIENT
  Age: 62 Year
  Sex: Female
  Weight: 111.3 kg

DRUGS (1)
  1. NICOTROL [Suspect]
     Active Substance: NICOTINE
     Indication: SMOKING CESSATION THERAPY
     Dosage: 10 MG, UNK (10MG; UP TO 40 SPRAYS A DAY)
     Dates: start: 201912

REACTIONS (3)
  - Headache [Recovering/Resolving]
  - Epistaxis [Recovering/Resolving]
  - Nasal discomfort [Unknown]

NARRATIVE: CASE EVENT DATE: 201912
